FAERS Safety Report 4647821-8 (Version None)
Quarter: 2005Q2

REPORT INFORMATION
  Report Type: 
  Country: None (occurrence: None)
  Receive Date: 20050428
  Receipt Date: 20040728
  Transmission Date: 20051028
  Serious: Yes (Hospitalization)
  Sender: FDA-Public Use
  Company Number: US-GLAXOSMITHKLINE-A0521201A

PATIENT
  Age: 47 Year
  Sex: Female

DRUGS (1)
  1. VALTREX [Suspect]
     Indication: DRUG USE FOR UNKNOWN INDICATION
     Dosage: 1000MG THREE TIMES PER DAY
     Route: 048
     Dates: start: 19981111, end: 19981114

REACTIONS (7)
  - ABDOMINAL PAIN [None]
  - ABDOMINAL PAIN LOWER [None]
  - APPENDICITIS [None]
  - HAEMATOMA [None]
  - KELOID SCAR [None]
  - MEDICATION ERROR [None]
  - PYREXIA [None]
